FAERS Safety Report 11414948 (Version 5)
Quarter: 2016Q1

REPORT INFORMATION
  Report Type: Report from Study
  Country: US (occurrence: US)
  Receive Date: 20150825
  Receipt Date: 20160129
  Transmission Date: 20160525
  Serious: No
  Sender: FDA-Public Use
  Company Number: US-AMGEN-USASL2015085170

PATIENT
  Age: 71 Year
  Sex: Female

DRUGS (5)
  1. VITAMIN D                          /00107901/ [Concomitant]
     Active Substance: ERGOCALCIFEROL
     Dosage: UNK
  2. VITAMIN C [Concomitant]
     Active Substance: ASCORBIC ACID
     Dosage: UNK
  3. OMEPRAZOLE. [Concomitant]
     Active Substance: OMEPRAZOLE
     Dosage: UNK
  4. ENBREL [Suspect]
     Active Substance: ETANERCEPT
     Indication: RHEUMATOID ARTHRITIS
     Dosage: 50 MG, QWK
     Route: 065
  5. ENBREL [Suspect]
     Active Substance: ETANERCEPT
     Dosage: UNK UNK, UNK
     Route: 065

REACTIONS (15)
  - Dizziness [Not Recovered/Not Resolved]
  - Injection site pain [Not Recovered/Not Resolved]
  - Hypotension [Unknown]
  - Blood glucose decreased [Unknown]
  - White blood cell count increased [Unknown]
  - Musculoskeletal pain [Not Recovered/Not Resolved]
  - Drug dose omission [Unknown]
  - Grip strength decreased [Not Recovered/Not Resolved]
  - Pain in extremity [Not Recovered/Not Resolved]
  - Injection site reaction [Unknown]
  - Blood pressure fluctuation [Unknown]
  - Injection site erythema [Recovered/Resolved]
  - Nodule [Unknown]
  - Arthralgia [Not Recovered/Not Resolved]
  - Pharyngitis [Unknown]

NARRATIVE: CASE EVENT DATE: 201510
